FAERS Safety Report 9313679 (Version 2)
Quarter: 2013Q2

REPORT INFORMATION
  Report Type: Report from Study
  Country: GB (occurrence: GB)
  Receive Date: 20130529
  Receipt Date: 20130625
  Transmission Date: 20140414
  Serious: Yes (Death, Other)
  Sender: FDA-Public Use
  Company Number: GB-AMGEN-GBRCT2012046710

PATIENT
  Age: 71 Year
  Sex: Male
  Weight: 86 kg

DRUGS (2)
  1. ETANERCEPT [Suspect]
     Indication: RHEUMATOID ARTHRITIS
     Dosage: 25 MG, 2X/WEEK
     Route: 065
     Dates: start: 20030915, end: 20031115
  2. METHOTREXATE [Concomitant]
     Dosage: UNK

REACTIONS (1)
  - Gastric cancer [Fatal]
